FAERS Safety Report 7797999-2 (Version None)
Quarter: 2011Q4

REPORT INFORMATION
  Report Type: 
  Country: None (occurrence: None)
  Receive Date: 20111005
  Receipt Date: 20110926
  Transmission Date: 20120403
  Serious: Yes (Other)
  Sender: FDA-Public Use
  Company Number: ES-GLAXOSMITHKLINE-B0752942A

PATIENT
  Age: 65 Year
  Sex: Female

DRUGS (1)
  1. ROPINIROLE [Suspect]
     Indication: PARKINSONISM
     Route: 065

REACTIONS (3)
  - STEREOTYPY [None]
  - HYPOMANIA [None]
  - IMPULSE-CONTROL DISORDER [None]
